FAERS Safety Report 14909974 (Version 5)
Quarter: 2021Q3

REPORT INFORMATION
  Report Type: Spontaneous
  Country: GB (occurrence: GB)
  Receive Date: 20180517
  Receipt Date: 20210916
  Transmission Date: 20211014
  Serious: Yes (Other)
  Sender: FDA-Public Use
  Company Number: GB-PFIZER INC-2017527671

PATIENT
  Age: 61 Year
  Sex: Female
  Weight: 63.5 kg

DRUGS (6)
  1. AMOXICILLIN. [Suspect]
     Active Substance: AMOXICILLIN
     Indication: PRODUCTIVE COUGH
     Dosage: UNK
     Route: 048
     Dates: start: 20171027, end: 20171102
  2. NAPROXEN. [Suspect]
     Active Substance: NAPROXEN
     Indication: BURSITIS
     Dosage: UNK
     Route: 048
     Dates: start: 20171005, end: 20171102
  3. AMLODIPINE BESILATE [Suspect]
     Active Substance: AMLODIPINE BESYLATE
     Dosage: UNK
     Route: 065
  4. LANSOPRAZOLE. [Suspect]
     Active Substance: LANSOPRAZOLE
     Indication: LOWER RESPIRATORY TRACT INFECTION
     Dosage: UNK
     Route: 048
     Dates: start: 20171005, end: 20171102
  5. AMLODIPINE [Concomitant]
     Active Substance: AMLODIPINE BESYLATE
     Dosage: UNK
     Route: 065
  6. NAPROXEN. [Suspect]
     Active Substance: NAPROXEN
     Indication: BURSITIS

REACTIONS (9)
  - Poor quality sleep [Unknown]
  - Mouth ulceration [Unknown]
  - Depression [Unknown]
  - Off label use [Unknown]
  - Nightmare [Recovered/Resolved]
  - Sleep disorder [Recovered/Resolved]
  - Dehydration [Unknown]
  - Diarrhoea [Not Recovered/Not Resolved]
  - Loss of consciousness [Unknown]

NARRATIVE: CASE EVENT DATE: 20171005
